FAERS Safety Report 7022560-7 (Version None)
Quarter: 2010Q3

REPORT INFORMATION
  Report Type: 
  Country: None (occurrence: None)
  Receive Date: 20100930
  Receipt Date: 20100928
  Transmission Date: 20110219
  Serious: Yes (Life-Threatening, Hospitalization)
  Sender: FDA-Public Use
  Company Number: BE-CELGENEUS-013-21880-10092559

PATIENT
  Sex: Male
  Weight: 54 kg

DRUGS (8)
  1. REVLIMID [Suspect]
     Indication: MULTIPLE MYELOMA
     Route: 048
     Dates: start: 20100712
  2. REVLIMID [Suspect]
     Route: 048
     Dates: start: 20100906, end: 20100914
  3. CYCLOPHOSPHAMIDE [Suspect]
     Indication: MULTIPLE MYELOMA
     Route: 048
     Dates: start: 20100712
  4. CYCLOPHOSPHAMIDE [Suspect]
     Route: 048
     Dates: start: 20100906, end: 20100914
  5. ACYCLOVIR [Concomitant]
     Route: 048
     Dates: start: 20060101
  6. LEVOTHYROXINE SODIUM [Concomitant]
     Indication: THYROXINE THERAPY
     Route: 048
     Dates: start: 20080101
  7. OMEPRAZOLE [Concomitant]
     Indication: DRUG THERAPY
     Route: 048
     Dates: start: 20060101
  8. STFROL [Concomitant]
     Indication: PAIN
     Route: 048
     Dates: start: 20100101

REACTIONS (2)
  - ESCHERICHIA INFECTION [None]
  - SEPTIC SHOCK [None]
